FAERS Safety Report 25666109 (Version 1)
Quarter: 2025Q3

REPORT INFORMATION
  Report Type: Spontaneous
  Country: EU (occurrence: EU)
  Receive Date: 20250811
  Receipt Date: 20250811
  Transmission Date: 20251021
  Serious: Yes (Death, Life-Threatening)
  Sender: ALEXION PHARMACEUTICALS
  Company Number: None

PATIENT
  Age: 79 Year
  Sex: Female
  Weight: 87.5 kg

DRUGS (6)
  1. DAPAGLIFLOZIN [Suspect]
     Active Substance: DAPAGLIFLOZIN
     Dates: end: 20250626
  2. AMIODARONE [Suspect]
     Active Substance: AMIODARONE
     Indication: Arrhythmia
     Dates: end: 20250626
  3. APIXABAN [Suspect]
     Active Substance: APIXABAN
     Dates: end: 20250626
  4. LEVOTHYROXINE [Suspect]
     Active Substance: LEVOTHYROXINE
     Dates: end: 20250626
  5. LERCANIDIPINE [Suspect]
     Active Substance: LERCANIDIPINE
     Dates: end: 20250626
  6. VITAMIN D3 [Suspect]
     Active Substance: CHOLECALCIFEROL

REACTIONS (1)
  - Interstitial lung disease [Fatal]

NARRATIVE: CASE EVENT DATE: 20250601
